FAERS Safety Report 6012373-7 (Version None)
Quarter: 2008Q4

REPORT INFORMATION
  Report Type: 
  Country: None (occurrence: None)
  Receive Date: 20081218
  Receipt Date: 20080919
  Transmission Date: 20090506
  Serious: No
  Sender: FDA-Public Use
  Company Number: US-ASTRAZENECA-2008UW19633

PATIENT
  Age: 71 Year
  Sex: Female

DRUGS (3)
  1. SYMBICORT [Suspect]
     Indication: ASTHMA
     Route: 055
  2. PREMARIN [Concomitant]
  3. PREDNISONE TAB [Concomitant]

REACTIONS (2)
  - DRUG INEFFECTIVE [None]
  - PSYCHOMOTOR HYPERACTIVITY [None]
